FAERS Safety Report 6115194-X (Version None)
Quarter: 2009Q1

REPORT INFORMATION
  Report Type: 
  Country: None (occurrence: None)
  Receive Date: 20090313
  Receipt Date: 20090304
  Transmission Date: 20090719
  Serious: Yes (Hospitalization, Other)
  Sender: FDA-Public Use
  Company Number: CA-JNJFOC-20090301246

PATIENT
  Sex: Female
  Weight: 47.7 kg

DRUGS (4)
  1. REMICADE [Suspect]
     Indication: COLITIS
     Route: 042
  2. REMICADE [Suspect]
     Indication: CROHN'S DISEASE
     Dosage: 24 INFUSIONS
     Route: 042
  3. IMURAN [Suspect]
     Indication: DRUG USE FOR UNKNOWN INDICATION
  4. AERIUS [Concomitant]
     Indication: PREMEDICATION

REACTIONS (2)
  - HERPES ZOSTER [None]
  - INFLUENZA LIKE ILLNESS [None]
